FAERS Safety Report 8089444-7 (Version None)
Quarter: 2012Q1

REPORT INFORMATION
  Report Type: 
  Country: None (occurrence: None)
  Receive Date: 20120128
  Receipt Date: 20110720
  Transmission Date: 20120608
  Serious: No
  Sender: FDA-Public Use
  Company Number: US-ABBOTT-11P-163-0725812-00

PATIENT
  Age: 57 Year
  Sex: Female

DRUGS (8)
  1. LEFLUNOMIDE [Concomitant]
     Indication: RHEUMATOID ARTHRITIS
     Dosage: 20 MG DAILY
  2. LISINOPRIL [Concomitant]
     Indication: HYPERTENSION
     Dosage: 20/25MG DAILY
  3. ACTOPLUS MET [Concomitant]
     Indication: DIABETES MELLITUS
     Dosage: 15-850MG BID
  4. LANTUS [Concomitant]
     Indication: DIABETES MELLITUS
     Dosage: IN AM
  5. PREDNISONE TAB [Concomitant]
     Indication: PRODUCT USED FOR UNKNOWN INDICATION
     Dosage: 5 MG DAILY
  6. FUROSEMIDE [Concomitant]
     Indication: FLUID RETENTION
     Dosage: 40 MG DAILY
  7. HUMIRA [Suspect]
     Indication: RHEUMATOID ARTHRITIS
     Dates: start: 20110331, end: 20110608
  8. ALLOPURINOL [Concomitant]
     Indication: GOUTY ARTHRITIS

REACTIONS (6)
  - MYALGIA [None]
  - MUSCLE TIGHTNESS [None]
  - OEDEMA PERIPHERAL [None]
  - LIMB DISCOMFORT [None]
  - PAIN IN EXTREMITY [None]
  - PHLEBITIS [None]
